FAERS Safety Report 8602617 (Version 2)
Quarter: 2012Q4

REPORT INFORMATION
  Report Type: Spontaneous
  Country: CA (occurrence: None)
  Receive Date: 20120525
  Receipt Date: 20120917
  Transmission Date: 20130627
  Serious: Yes (Hospitalization)
  Sender: FDA-Public Use
  Company Number: CA-008471

PATIENT
  Age: 60 Year
  Sex: Male
  Weight: 53 kg

DRUGS (8)
  1. DDAVP [Suspect]
     Indication: ENURESIS
     Dates: start: 20110923, end: 20111003
  2. CLOMIPRAMINE HYDROCHLORIDE [Concomitant]
  3. CLONAZEPAM [Concomitant]
  4. LOPERAMIDE [Concomitant]
  5. OLANZAPINE [Concomitant]
  6. OXYBUTYNIN [Concomitant]
  7. PANTOPRAZOLE [Concomitant]
  8. PROPRANOLOL [Concomitant]

REACTIONS (5)
  - Blood creatine phosphokinase increased [None]
  - Blood osmolarity increased [None]
  - Fall [None]
  - General physical health deterioration [None]
  - Hyponatraemia [None]
